FAERS Safety Report 8262132-X (Version None)
Quarter: 2012Q2

REPORT INFORMATION
  Report Type: 
  Country: None (occurrence: None)
  Receive Date: 20120405
  Receipt Date: 20120403
  Transmission Date: 20120825
  Serious: Yes (Life-Threatening, Hospitalization, Disabling, Other)
  Sender: FDA-Public Use
  Company Number: PHHY2012DE006013

PATIENT
  Sex: Female
  Weight: 70 kg

DRUGS (10)
  1. CITALOPRAM HYDROBROMIDE [Concomitant]
     Indication: DEPRESSION
     Dosage: 10 MG, DAILY
     Route: 048
  2. RAMIPRIL [Concomitant]
     Indication: HYPERTENSION
     Dosage: 2.5 MG,DAILY
     Route: 048
     Dates: start: 20111201
  3. PREGABALIN [Concomitant]
     Indication: PAIN
     Dosage: 225 MG, UNK
     Route: 048
     Dates: start: 20111201
  4. SORAFENIB [Concomitant]
     Dosage: UNK UKN, UNK
     Dates: start: 20110801
  5. METAMIZOLE [Concomitant]
     Indication: PAIN
     Dosage: 120 DRP, UNK
     Route: 048
     Dates: start: 20111201
  6. HYDROMORPHONE HCL [Concomitant]
     Indication: PAIN
     Dosage: 24 MG, UNK
     Route: 048
     Dates: start: 20111201
  7. LEVOTHYROXINE SODIUM [Concomitant]
     Indication: HYPOTHYROIDISM
     Dosage: 25 UG/DAY
     Route: 048
  8. OPIPRAMOL [Concomitant]
     Indication: INSOMNIA
     Dosage: 50 MG/DAY
     Route: 048
  9. TASIGNA [Suspect]
     Indication: CHRONIC MYELOID LEUKAEMIA
     Dosage: 600 MG/DAY
     Route: 048
     Dates: start: 20110802, end: 20120109
  10. ASPIRIN [Concomitant]
     Indication: NECROSIS
     Dosage: 100 MG/DAY
     Route: 048
     Dates: start: 20111201

REACTIONS (6)
  - BLISTER [None]
  - PALMAR-PLANTAR ERYTHRODYSAESTHESIA SYNDROME [None]
  - NECROSIS [None]
  - OEDEMA PERIPHERAL [None]
  - PAIN IN EXTREMITY [None]
  - SKIN DISCOLOURATION [None]
